FAERS Safety Report 7937651-3 (Version None)
Quarter: 2011Q4

REPORT INFORMATION
  Report Type: 
  Country: None (occurrence: None)
  Receive Date: 20111123
  Receipt Date: 20111111
  Transmission Date: 20120403
  Serious: Yes (Hospitalization, Other)
  Sender: FDA-Public Use
  Company Number: PHHY2011EC100062

PATIENT
  Sex: Female

DRUGS (4)
  1. EXFORGE [Suspect]
     Indication: HYPERTENSION
     Dosage: 1 TABLET (160/5MG) DAILY
     Dates: start: 20110124
  2. FERRUM [Concomitant]
     Dosage: UNK UKN, UNK
  3. RECORMON [Concomitant]
     Dosage: 5000 IU, UNK
  4. RASILEZ [Suspect]
     Indication: HYPERTENSION
     Dosage: 1 TABLET (300MG) DAILY
     Dates: start: 20110124

REACTIONS (2)
  - FALL [None]
  - HIP FRACTURE [None]
